FAERS Safety Report 6712969-0 (Version None)
Quarter: 2010Q2

REPORT INFORMATION
  Report Type: 
  Country: None (occurrence: None)
  Receive Date: 20100506
  Receipt Date: 20100503
  Transmission Date: 20101027
  Serious: Yes (Hospitalization)
  Sender: FDA-Public Use
  Company Number: CH-BRISTOL-MYERS SQUIBB COMPANY-15088024

PATIENT
  Age: 53 Year
  Sex: Male

DRUGS (6)
  1. ABILIFY [Suspect]
     Indication: BIPOLAR DISORDER
     Route: 048
     Dates: start: 20091201, end: 20100201
  2. SEROQUEL [Suspect]
     Indication: BIPOLAR DISORDER
     Dosage: SEROQUEL XR
     Route: 048
     Dates: start: 20090912
  3. DEPAKENE [Suspect]
     Indication: BIPOLAR DISORDER
     Dosage: 1500 MG/DAY FROM 04-FEB-2010
     Route: 048
     Dates: start: 20090912
  4. ZOLPIDEM [Concomitant]
  5. ADALAT [Concomitant]
  6. LORAZEPAM [Concomitant]

REACTIONS (7)
  - AGITATION [None]
  - ALANINE AMINOTRANSFERASE INCREASED [None]
  - ASPARTATE AMINOTRANSFERASE INCREASED [None]
  - BLOOD CREATINE PHOSPHOKINASE INCREASED [None]
  - FEAR [None]
  - PARKINSONISM [None]
  - PSYCHOTIC DISORDER [None]
